FAERS Safety Report 17893387 (Version 2)
Quarter: 2020Q2

REPORT INFORMATION
  Report Type: Spontaneous
  Country: JP (occurrence: JP)
  Receive Date: 20200615
  Receipt Date: 20200619
  Transmission Date: 20200714
  Serious: Yes (Other)
  Sender: FDA-Public Use
  Company Number: JP-MTPC-MTPC2020-0055088

PATIENT

DRUGS (2)
  1. RADICUT INJ. 30MG [Suspect]
     Active Substance: EDARAVONE
     Indication: CEREBRAL INFARCTION
     Dosage: UNK
     Route: 041
  2. RADICUT INJ. 30MG [Suspect]
     Active Substance: EDARAVONE
     Dosage: UNK
     Route: 041

REACTIONS (1)
  - Cerebral infarction [Unknown]
